FAERS Safety Report 5159467-6 (Version None)
Quarter: 2006Q4

REPORT INFORMATION
  Report Type: 
  Country: None (occurrence: None)
  Receive Date: 20061122
  Receipt Date: 20061122
  Transmission Date: 20070319
  Serious: Yes (Disabling, Other)
  Sender: FDA-Public Use
  Company Number: None

PATIENT
  Age: 40 Year
  Sex: Female
  Weight: 72.5755 kg

DRUGS (2)
  1. CLEOCIN [Suspect]
     Indication: TOOTH ABSCESS
     Dosage: 1 CAPSULE 3 TIMES DAILY  3TIMES DAILY PO
     Route: 048
     Dates: start: 20041113, end: 20061119
  2. CLEOCIN [Suspect]
     Indication: TOOTH INFECTION
     Dosage: 1 CAPSULE 3 TIMES DAILY  3TIMES DAILY PO
     Route: 048
     Dates: start: 20041113, end: 20061119

REACTIONS (10)
  - CONFUSIONAL STATE [None]
  - DRUG INEFFECTIVE [None]
  - DYSACUSIS [None]
  - FEELING ABNORMAL [None]
  - HEARING IMPAIRED [None]
  - HYPERHIDROSIS [None]
  - PALPITATIONS [None]
  - THINKING ABNORMAL [None]
  - VISION BLURRED [None]
  - VISUAL DISTURBANCE [None]
